FAERS Safety Report 5003969-X (Version None)
Quarter: 2006Q2

REPORT INFORMATION
  Report Type: 
  Country: None (occurrence: None)
  Receive Date: 20060517
  Receipt Date: 20060503
  Transmission Date: 20061013
  Serious: Yes (Other)
  Sender: FDA-Public Use
  Company Number: GBWYE602805MAY06

PATIENT
  Sex: Female

DRUGS (12)
  1. ENBREL [Suspect]
     Indication: PSORIATIC ARTHROPATHY
     Route: 058
     Dates: start: 20021030, end: 20041206
  2. DICLOFENAC POTASSIUM [Concomitant]
     Dates: start: 20011101
  3. PREDNISOLONE [Concomitant]
     Route: 048
     Dates: start: 20010401
  4. PREDNISOLONE [Concomitant]
     Route: 048
     Dates: start: 20030701
  5. PREDNISOLONE [Concomitant]
     Route: 048
     Dates: start: 20030901
  6. OMEPRAZOLE [Concomitant]
     Route: 048
     Dates: start: 20020601
  7. CALCIUM CARBONATE/COLECALCIFEROL [Concomitant]
     Route: 048
     Dates: start: 20020601
  8. ERGOCALCIFEROL [Concomitant]
     Route: 048
  9. FUSIDATE SODIUM [Concomitant]
     Dosage: SHORT COURSE CREAM
     Route: 061
     Dates: start: 20030101
  10. TRIAMCINOLONE ACETONIDE [Concomitant]
     Dosage: 4 INJECTIONS
     Dates: start: 20031201
  11. METHOTREXATE [Concomitant]
     Dates: start: 20010401
  12. METHOTREXATE [Concomitant]
     Dates: start: 20030901

REACTIONS (1)
  - RENAL DISORDER [None]
